FAERS Safety Report 19218351 (Version 1)
Quarter: 2021Q2

REPORT INFORMATION
  Report Type: Spontaneous
  Country: DE (occurrence: DE)
  Receive Date: 20210505
  Receipt Date: 20210505
  Transmission Date: 20210717
  Serious: Yes (Hospitalization, Other)
  Sender: FDA-Public Use
  Company Number: DE-ACCORD-223757

PATIENT
  Age: 5 Year
  Sex: Male
  Weight: 19 kg

DRUGS (5)
  1. CEFACLOR. [Concomitant]
     Active Substance: CEFACLOR
     Indication: STREPTOCOCCAL SEPSIS
     Route: 048
     Dates: end: 20190927
  2. VALGANCICLOVIR. [Concomitant]
     Active Substance: VALGANCICLOVIR
     Indication: CYTOMEGALOVIRUS INFECTION
     Route: 048
  3. MYCOPHENOLATE [Concomitant]
     Active Substance: MYCOPHENOLIC ACID
     Indication: CYTOMEGALOVIRUS INFECTION
     Route: 048
  4. FUROSEMIDE. [Suspect]
     Active Substance: FUROSEMIDE
     Indication: OEDEMA
     Dates: end: 20190921
  5. TACROLIMUS. [Concomitant]
     Active Substance: TACROLIMUS
     Indication: CYTOMEGALOVIRUS INFECTION
     Route: 048

REACTIONS (2)
  - Ascites [Unknown]
  - Oedema [Unknown]

NARRATIVE: CASE EVENT DATE: 20190827
